FAERS Safety Report 6676545-0 (Version None)
Quarter: 2010Q2

REPORT INFORMATION
  Report Type: 
  Country: None (occurrence: None)
  Receive Date: 20100408
  Receipt Date: 20100331
  Transmission Date: 20101027
  Serious: Yes (Hospitalization)
  Sender: FDA-Public Use
  Company Number: TPA2010A01617

PATIENT
  Sex: Male

DRUGS (3)
  1. ACTOS [Suspect]
     Indication: DRUG USE FOR UNKNOWN INDICATION
  2. BYETTA [Suspect]
     Indication: DRUG USE FOR UNKNOWN INDICATION
  3. GLUCOPHAGE [Suspect]
     Indication: DRUG USE FOR UNKNOWN INDICATION

REACTIONS (1)
  - PNEUMONIA [None]
